FAERS Safety Report 7853101-X (Version None)
Quarter: 2011Q4

REPORT INFORMATION
  Report Type: 
  Country: None (occurrence: None)
  Receive Date: 20111026
  Receipt Date: 20111020
  Transmission Date: 20120403
  Serious: No
  Sender: FDA-Public Use
  Company Number: US-JNJFOC-20111009281

PATIENT
  Age: 16 Year
  Sex: Male

DRUGS (1)
  1. INVEGA [Suspect]
     Indication: AFFECTIVE DISORDER
     Route: 048
     Dates: start: 20110701

REACTIONS (2)
  - DRUG DOSE OMISSION [None]
  - TREATMENT NONCOMPLIANCE [None]
